FAERS Safety Report 26208752 (Version 1)
Quarter: 2025Q4

REPORT INFORMATION
  Report Type: Spontaneous
  Country: AU (occurrence: AU)
  Receive Date: 20251229
  Receipt Date: 20251229
  Transmission Date: 20260117
  Serious: Yes (Other)
  Sender: MYLAN
  Company Number: AU-MYLANLABS-2025M1109699

PATIENT
  Age: 53 Year
  Sex: Female

DRUGS (40)
  1. METHOTREXATE [Suspect]
     Active Substance: METHOTREXATE
     Indication: Oral lichen planus
     Dosage: UNK
  2. METHOTREXATE [Suspect]
     Active Substance: METHOTREXATE
     Indication: Lichen planus
     Dosage: UNK
     Route: 065
  3. METHOTREXATE [Suspect]
     Active Substance: METHOTREXATE
     Dosage: UNK
     Route: 065
  4. METHOTREXATE [Suspect]
     Active Substance: METHOTREXATE
     Dosage: UNK
  5. MYCOPHENOLATE MOFETIL [Suspect]
     Active Substance: MYCOPHENOLATE MOFETIL
     Indication: Oral lichen planus
     Dosage: UNK
  6. MYCOPHENOLATE MOFETIL [Suspect]
     Active Substance: MYCOPHENOLATE MOFETIL
     Indication: Lichen planus
     Dosage: UNK
     Route: 065
  7. MYCOPHENOLATE MOFETIL [Suspect]
     Active Substance: MYCOPHENOLATE MOFETIL
     Dosage: UNK
     Route: 065
  8. MYCOPHENOLATE MOFETIL [Suspect]
     Active Substance: MYCOPHENOLATE MOFETIL
     Dosage: UNK
  9. HYDROXYCHLOROQUINE [Suspect]
     Active Substance: HYDROXYCHLOROQUINE
     Indication: Oral lichen planus
     Dosage: UNK
  10. HYDROXYCHLOROQUINE [Suspect]
     Active Substance: HYDROXYCHLOROQUINE
     Indication: Lichen planus
     Dosage: UNK
     Route: 065
  11. HYDROXYCHLOROQUINE [Suspect]
     Active Substance: HYDROXYCHLOROQUINE
     Dosage: UNK
     Route: 065
  12. HYDROXYCHLOROQUINE [Suspect]
     Active Substance: HYDROXYCHLOROQUINE
     Dosage: UNK
  13. CYCLOSPORINE [Suspect]
     Active Substance: CYCLOSPORINE
     Indication: Oral lichen planus
     Dosage: UNK
  14. CYCLOSPORINE [Suspect]
     Active Substance: CYCLOSPORINE
     Indication: Lichen planus
     Dosage: UNK
     Route: 065
  15. CYCLOSPORINE [Suspect]
     Active Substance: CYCLOSPORINE
     Dosage: UNK
     Route: 065
  16. CYCLOSPORINE [Suspect]
     Active Substance: CYCLOSPORINE
     Dosage: UNK
  17. RITUXIMAB [Suspect]
     Active Substance: RITUXIMAB
     Indication: Oral lichen planus
     Dosage: UNK
  18. RITUXIMAB [Suspect]
     Active Substance: RITUXIMAB
     Indication: Lichen planus
     Dosage: UNK
     Route: 065
  19. RITUXIMAB [Suspect]
     Active Substance: RITUXIMAB
     Dosage: UNK
     Route: 065
  20. RITUXIMAB [Suspect]
     Active Substance: RITUXIMAB
     Dosage: UNK
  21. ADALIMUMAB [Suspect]
     Active Substance: ADALIMUMAB
     Indication: Oral lichen planus
     Dosage: UNK
  22. ADALIMUMAB [Suspect]
     Active Substance: ADALIMUMAB
     Indication: Lichen planus
     Dosage: UNK
     Route: 065
  23. ADALIMUMAB [Suspect]
     Active Substance: ADALIMUMAB
     Dosage: UNK
     Route: 065
  24. ADALIMUMAB [Suspect]
     Active Substance: ADALIMUMAB
     Dosage: UNK
  25. USTEKINUMAB [Suspect]
     Active Substance: USTEKINUMAB
     Indication: Oral lichen planus
     Dosage: UNK
  26. USTEKINUMAB [Suspect]
     Active Substance: USTEKINUMAB
     Indication: Lichen planus
     Dosage: UNK
     Route: 065
  27. USTEKINUMAB [Suspect]
     Active Substance: USTEKINUMAB
     Dosage: UNK
     Route: 065
  28. USTEKINUMAB [Suspect]
     Active Substance: USTEKINUMAB
     Dosage: UNK
  29. GOLIMUMAB [Suspect]
     Active Substance: GOLIMUMAB
     Indication: Oral lichen planus
     Dosage: UNK
  30. GOLIMUMAB [Suspect]
     Active Substance: GOLIMUMAB
     Indication: Lichen planus
     Dosage: UNK
     Route: 065
  31. GOLIMUMAB [Suspect]
     Active Substance: GOLIMUMAB
     Dosage: UNK
     Route: 065
  32. GOLIMUMAB [Suspect]
     Active Substance: GOLIMUMAB
     Dosage: UNK
  33. THALIDOMIDE [Suspect]
     Active Substance: THALIDOMIDE
     Indication: Oral lichen planus
     Dosage: UNK
  34. THALIDOMIDE [Suspect]
     Active Substance: THALIDOMIDE
     Indication: Lichen planus
     Dosage: UNK
     Route: 065
  35. THALIDOMIDE [Suspect]
     Active Substance: THALIDOMIDE
     Dosage: UNK
     Route: 065
  36. THALIDOMIDE [Suspect]
     Active Substance: THALIDOMIDE
     Dosage: UNK
  37. EVEROLIMUS [Suspect]
     Active Substance: EVEROLIMUS
     Indication: Oral lichen planus
     Dosage: UNK
  38. EVEROLIMUS [Suspect]
     Active Substance: EVEROLIMUS
     Indication: Lichen planus
     Dosage: UNK
     Route: 065
  39. EVEROLIMUS [Suspect]
     Active Substance: EVEROLIMUS
     Dosage: UNK
     Route: 065
  40. EVEROLIMUS [Suspect]
     Active Substance: EVEROLIMUS
     Dosage: UNK

REACTIONS (2)
  - Drug ineffective for unapproved indication [Unknown]
  - Product prescribing issue [Unknown]
